FAERS Safety Report 4923138-9 (Version None)
Quarter: 2006Q1

REPORT INFORMATION
  Report Type: 
  Country: None (occurrence: None)
  Receive Date: 20060113
  Receipt Date: 20050120
  Transmission Date: 20060701
  Serious: Yes (Other)
  Sender: FDA-Public Use
  Company Number: HQWYE779021JAN05

PATIENT
  Age: 65 Year
  Sex: Female
  Weight: 68.1 kg

DRUGS (5)
  1. PREMPRO [Suspect]
     Dosage: 0.625MG/2.5MG, ORAL
     Route: 048
     Dates: start: 20010101
  2. PREMARIN [Suspect]
     Dosage: 0.625MG, ORAL
     Route: 048
     Dates: start: 19950101
  3. PROVERA [Suspect]
     Dosage: 2.5MG, ORAL
     Route: 048
     Dates: start: 19950101, end: 19980101
  4. UNSPECIFIED ESTROGEN REPLACEMENT THERAPY (UNSPECIFIED ESTROGEN REPLACE [Suspect]
     Dosage: ORAL
     Route: 048
     Dates: start: 19980101, end: 20000101
  5. SYNTHROID [Concomitant]

REACTIONS (1)
  - BREAST CANCER [None]
